FAERS Safety Report 6814865-7 (Version None)
Quarter: 2010Q3

REPORT INFORMATION
  Report Type: 
  Country: None (occurrence: None)
  Receive Date: 20100702
  Receipt Date: 20100621
  Transmission Date: 20110219
  Serious: Yes (Death)
  Sender: FDA-Public Use
  Company Number: B0663155B

PATIENT

DRUGS (3)
  1. LAMOTRIGINE [Suspect]
     Indication: MYOCLONIC EPILEPSY
     Dosage: 250MG PER DAY
  2. CLONAZEPAM [Suspect]
     Dosage: .5MG PER DAY
  3. FOLIC ACID [Concomitant]
     Dosage: 5MG PER DAY
     Route: 065

REACTIONS (9)
  - ASCITES [None]
  - ATRIAL SEPTAL DEFECT [None]
  - FOETAL HEART RATE ABNORMAL [None]
  - FOETAL HYPOKINESIA [None]
  - HYDROPS FOETALIS [None]
  - NEONATAL ASPIRATION [None]
  - PLEURAL EFFUSION [None]
  - POLYDACTYLY [None]
  - VENTRICULAR SEPTAL DEFECT [None]
